FAERS Safety Report 7689904-4 (Version None)
Quarter: 2011Q3

REPORT INFORMATION
  Report Type: 
  Country: None (occurrence: None)
  Receive Date: 20110818
  Receipt Date: 20110808
  Transmission Date: 20111222
  Serious: No
  Sender: FDA-Public Use
  Company Number: US-BIOGENIDEC-2011BI020907

PATIENT
  Age: 66 Year
  Sex: Female

DRUGS (2)
  1. AVONEX [Concomitant]
     Indication: MULTIPLE SCLEROSIS
     Route: 030
  2. TYSABRI [Suspect]
     Indication: MULTIPLE SCLEROSIS
     Route: 042
     Dates: start: 20110328, end: 20110603

REACTIONS (11)
  - ADVERSE DRUG REACTION [None]
  - MUSCULOSKELETAL DISORDER [None]
  - MOBILITY DECREASED [None]
  - CYSTITIS [None]
  - FALL [None]
  - URINARY INCONTINENCE [None]
  - CONFUSIONAL STATE [None]
  - VISUAL IMPAIRMENT [None]
  - GENERAL PHYSICAL HEALTH DETERIORATION [None]
  - DIZZINESS [None]
  - MULTIPLE SCLEROSIS RELAPSE [None]
